FAERS Safety Report 20556348 (Version 5)
Quarter: 2023Q1

REPORT INFORMATION
  Report Type: Report from Study
  Country: US (occurrence: US)
  Receive Date: 20220305
  Receipt Date: 20230322
  Transmission Date: 20230417
  Serious: Yes (Other)
  Sender: FDA-Public Use
  Company Number: US-NOVARTISPH-NVSC2022US050170

PATIENT
  Sex: Male

DRUGS (1)
  1. ENTRESTO [Suspect]
     Active Substance: SACUBITRIL\VALSARTAN
     Indication: Product used for unknown indication
     Dosage: UNK
     Route: 065

REACTIONS (7)
  - Cardiac failure congestive [Unknown]
  - Atrial fibrillation [Unknown]
  - Myocardial infarction [Unknown]
  - Loss of consciousness [Unknown]
  - Stress [Unknown]
  - Blood pressure increased [Unknown]
  - Drug ineffective [Unknown]
